FAERS Safety Report 6574348-9 (Version None)
Quarter: 2010Q1

REPORT INFORMATION
  Report Type: 
  Country: None (occurrence: None)
  Receive Date: 20100208
  Receipt Date: 20100127
  Transmission Date: 20100710
  Serious: Yes (Other)
  Sender: FDA-Public Use
  Company Number: US-ROCHE-662543

PATIENT
  Sex: Male
  Weight: 86.2 kg

DRUGS (4)
  1. ACCUTANE [Suspect]
     Indication: ACNE
     Route: 065
     Dates: start: 19980323, end: 19980809
  2. RHINOCORT [Concomitant]
  3. CLARITIN [Concomitant]
  4. ZYRTEC [Concomitant]

REACTIONS (5)
  - DEPRESSION [None]
  - INFLAMMATORY BOWEL DISEASE [None]
  - NEPHROLITHIASIS [None]
  - PROCTITIS ULCERATIVE [None]
  - SUICIDAL IDEATION [None]
